FAERS Safety Report 16616849 (Version 3)
Quarter: 2019Q3

REPORT INFORMATION
  Report Type: Report from Study
  Country: US (occurrence: US)
  Receive Date: 20190723
  Receipt Date: 20190821
  Transmission Date: 20191004
  Serious: Yes (Hospitalization)
  Sender: FDA-Public Use
  Company Number: US-TESAROUBC-2019-TSO02592-US

PATIENT
  Sex: Female

DRUGS (1)
  1. ZEJULA [Suspect]
     Active Substance: NIRAPARIB
     Indication: OVARIAN CANCER
     Dosage: 300 MG, QD
     Route: 048
     Dates: start: 20190528, end: 201907

REACTIONS (8)
  - Malaise [Unknown]
  - Fatigue [Unknown]
  - Supraventricular tachycardia [Unknown]
  - Thrombocytopenia [Not Recovered/Not Resolved]
  - Urinary tract infection [Unknown]
  - Palpitations [Unknown]
  - Toxicity to various agents [Unknown]
  - Nausea [Unknown]
